FAERS Safety Report 12523082 (Version 1)
Quarter: 2016Q3

REPORT INFORMATION
  Report Type: Spontaneous
  Country: FR (occurrence: FR)
  Receive Date: 20160701
  Receipt Date: 20160701
  Transmission Date: 20161109
  Serious: Yes (Hospitalization)
  Sender: FDA-Public Use
  Company Number: PHHY2016FR089680

PATIENT
  Age: 69 Year
  Sex: Female

DRUGS (5)
  1. ANTIHISTAMINES [Suspect]
     Active Substance: ANTIHISTAMINES NOS
     Indication: PRODUCT USED FOR UNKNOWN INDICATION
     Route: 065
  2. INEXIUM//ESOMEPRAZOLE MAGNESIUM [Suspect]
     Active Substance: ESOMEPRAZOLE MAGNESIUM
     Indication: GASTROOESOPHAGEAL REFLUX DISEASE
     Dosage: UNK
     Route: 048
     Dates: start: 201604, end: 20160509
  3. SIMVASTATIN. [Concomitant]
     Active Substance: SIMVASTATIN
     Indication: HYPERCHOLESTEROLAEMIA
     Dosage: 20 MG, QD
     Route: 048
  4. LEVOTHYROX [Concomitant]
     Active Substance: LEVOTHYROXINE
     Indication: HYPOTHYROIDISM
     Dosage: 75 UG, QD
     Route: 048
  5. VOLTARENE [Suspect]
     Active Substance: DICLOFENAC SODIUM
     Indication: RHEUMATIC DISORDER
     Dosage: UNK
     Route: 048
     Dates: start: 201604, end: 20160509

REACTIONS (2)
  - Pyrexia [Recovered/Resolved]
  - Rash morbilliform [Recovered/Resolved]

NARRATIVE: CASE EVENT DATE: 20160508
